FAERS Safety Report 5065511-7 (Version None)
Quarter: 2006Q3

REPORT INFORMATION
  Report Type: 
  Country: None (occurrence: None)
  Receive Date: 20060731
  Receipt Date: 20060630
  Transmission Date: 20061208
  Serious: Yes (Other)
  Sender: FDA-Public Use
  Company Number: CZ-BRISTOL-MYERS SQUIBB COMPANY-13457437

PATIENT
  Age: 32 Year
  Sex: Female

DRUGS (3)
  1. TRITTICO [Suspect]
     Indication: SLEEP DISORDER
     Route: 048
  2. WARFARIN SODIUM [Interacting]
     Indication: VENA CAVA FILTER INSERTION
  3. WARFARIN SODIUM [Interacting]
     Indication: OBSTETRICAL PULMONARY EMBOLISM

REACTIONS (2)
  - DRUG INTERACTION [None]
  - INTERNATIONAL NORMALISED RATIO DECREASED [None]
